FAERS Safety Report 19062682 (Version 1)
Quarter: 2021Q1

REPORT INFORMATION
  Report Type: Spontaneous
  Country: US (occurrence: US)
  Receive Date: 20210326
  Receipt Date: 20210326
  Transmission Date: 20210420
  Serious: Yes (Hospitalization)
  Sender: FDA-Public Use
  Company Number: None

PATIENT
  Age: 55 Year
  Sex: Female

DRUGS (6)
  1. XELJANZ XR [Suspect]
     Active Substance: TOFACITINIB CITRATE
     Indication: PSORIASIS
     Dosage: 1 TAB QD PO
     Route: 048
     Dates: start: 20200114
  2. GABAPENTIN. [Concomitant]
     Active Substance: GABAPENTIN
  3. ONDANSETRON [Concomitant]
     Active Substance: ONDANSETRON
  4. HYDROCO/APAP [Concomitant]
     Active Substance: ACETAMINOPHEN\HYDROCODONE
  5. TAMADOL HCL [Concomitant]
  6. DOK [Concomitant]
     Active Substance: DOCUSATE SODIUM

REACTIONS (1)
  - Therapy interrupted [None]

NARRATIVE: CASE EVENT DATE: 202102
